FAERS Safety Report 6523840-1 (Version None)
Quarter: 2009Q4

REPORT INFORMATION
  Report Type: 
  Country: None (occurrence: None)
  Receive Date: 20091230
  Receipt Date: 20091230
  Transmission Date: 20100525
  Serious: Yes (Other)
  Sender: FDA-Public Use
  Company Number: None

PATIENT
  Age: 60 Year
  Sex: Female
  Weight: 106.5953 kg

DRUGS (1)
  1. TYLENOL ARTHRITIS 650MG TYLENOL CAPLETS [Suspect]
     Indication: OSTEOARTHRITIS
     Dosage: 650MGX2 EVERY 8 HRS PO
     Route: 048
     Dates: start: 20091227, end: 20091229

REACTIONS (1)
  - DIARRHOEA [None]
